FAERS Safety Report 4361549-3 (Version None)
Quarter: 2004Q2

REPORT INFORMATION
  Report Type: 
  Country: None (occurrence: None)
  Receive Date: 20040521
  Receipt Date: 20040331
  Transmission Date: 20050107
  Serious: Yes (Other)
  Sender: FDA-Public Use
  Company Number: US-GLAXOSMITHKLINE-A0505378A

PATIENT

DRUGS (2)
  1. WELLBUTRIN [Suspect]
     Indication: ILL-DEFINED DISORDER
     Route: 048
  2. PSYCHOTROPIC MEDICATIONS [Concomitant]

REACTIONS (1)
  - CONVULSION [None]
